FAERS Safety Report 7231569-X (Version None)
Quarter: 2011Q1

REPORT INFORMATION
  Report Type: 
  Country: None (occurrence: None)
  Receive Date: 20110118
  Receipt Date: 20110107
  Transmission Date: 20110831
  Serious: Yes (Hospitalization, Other)
  Sender: FDA-Public Use
  Company Number: BR-ASTRAZENECA-2011SE01450

PATIENT
  Age: 77 Year
  Sex: Male
  Weight: 50 kg

DRUGS (8)
  1. SIMVASTATIN [Concomitant]
     Indication: HYPERCHOLESTEROLAEMIA
     Route: 048
  2. SEROQUEL [Suspect]
     Route: 048
     Dates: start: 20110102
  3. COUMADIN [Concomitant]
     Indication: ANTICOAGULANT THERAPY
     Route: 048
     Dates: start: 20020101
  4. AMLOVASC [Concomitant]
     Route: 048
  5. SEROQUEL [Suspect]
     Indication: DEMENTIA ALZHEIMER'S TYPE
     Dosage: HALF TABLET BID
     Route: 048
     Dates: start: 20070101, end: 20110102
  6. REMINYL [Concomitant]
     Indication: DEMENTIA ALZHEIMER'S TYPE
     Route: 048
  7. RIVOTRIL [Concomitant]
     Route: 048
     Dates: start: 20090101
  8. EPREX [Concomitant]
     Indication: ANAEMIA
     Route: 058

REACTIONS (5)
  - CARDIO-RESPIRATORY ARREST [None]
  - MEDICATION ERROR [None]
  - DEPRESSION [None]
  - RENAL DISORDER [None]
  - DRUG ABUSE [None]
